FAERS Safety Report 23144443 (Version 1)
Quarter: 2023Q4

REPORT INFORMATION
  Report Type: Spontaneous
  Country: DE (occurrence: DE)
  Receive Date: 20231103
  Receipt Date: 20231103
  Transmission Date: 20240110
  Serious: Yes (Other)
  Sender: FDA-Public Use
  Company Number: DE-ARGENX-2023-ARGX-DE003663

PATIENT

DRUGS (1)
  1. VYVGART [Suspect]
     Active Substance: EFGARTIGIMOD ALFA-FCAB
     Indication: Myasthenic syndrome
     Dosage: UNK
     Dates: start: 20231016

REACTIONS (5)
  - Rib fracture [Unknown]
  - Dyspnoea at rest [Unknown]
  - Off label use [Unknown]
  - Myasthenic syndrome [Unknown]
  - Fall [Unknown]

NARRATIVE: CASE EVENT DATE: 20231016
